FAERS Safety Report 8610540 (Version 6)
Quarter: 2013Q4

REPORT INFORMATION
  Report Type: Spontaneous
  Country: US (occurrence: US)
  Receive Date: 20120529
  Receipt Date: 20131108
  Transmission Date: 20140711
  Serious: Yes (Hospitalization, Disabling, Other)
  Sender: FDA-Public Use
  Company Number: US-009507513-2012SP003425

PATIENT
  Age: 27 Year
  Sex: Female
  Weight: 72.58 kg

DRUGS (1)
  1. NUVARING [Suspect]
     Indication: CONTRACEPTION
     Dates: start: 20050923, end: 201008

REACTIONS (23)
  - Pancreatitis [Unknown]
  - Hypokalaemia [Unknown]
  - Vomiting [Recovered/Resolved]
  - Urinary tract infection [Unknown]
  - Deep vein thrombosis [Unknown]
  - Pulmonary embolism [Unknown]
  - Disturbance in attention [Not Recovered/Not Resolved]
  - Cervical dysplasia [Unknown]
  - Carotidynia [Unknown]
  - Systemic lupus erythematosus [Unknown]
  - Liver disorder [Unknown]
  - Oedema peripheral [Recovered/Resolved]
  - Weight increased [Unknown]
  - Chest pain [Recovered/Resolved]
  - Pain in extremity [Not Recovered/Not Resolved]
  - Local swelling [Recovered/Resolved]
  - Local swelling [Unknown]
  - Neck pain [Unknown]
  - Muscle strain [Unknown]
  - Back pain [Recovering/Resolving]
  - Muscle strain [Unknown]
  - Dizziness [Unknown]
  - Liposuction [Unknown]
